FAERS Safety Report 18492185 (Version 1)
Quarter: 2020Q4

REPORT INFORMATION
  Report Type: Spontaneous
  Country: AT (occurrence: AT)
  Receive Date: 20201111
  Receipt Date: 20201111
  Transmission Date: 20210114
  Serious: Yes (Other)
  Sender: FDA-Public Use
  Company Number: AT-AMGEN-AUTSP2020177265

PATIENT
  Age: 49 Year
  Sex: Male

DRUGS (1)
  1. ADALIMUMAB [Suspect]
     Active Substance: ADALIMUMAB
     Indication: RHEUMATOID ARTHRITIS
     Dosage: UNK
     Route: 065

REACTIONS (11)
  - Sarcoidosis [Unknown]
  - Acute kidney injury [Unknown]
  - Periorbital oedema [Unknown]
  - Glomerulonephritis proliferative [Recovering/Resolving]
  - Blood pressure increased [Unknown]
  - Hilar lymphadenopathy [Unknown]
  - Pain in extremity [Unknown]
  - Fatigue [Unknown]
  - Pulmonary mass [Recovering/Resolving]
  - Glomerulonephritis rapidly progressive [Recovering/Resolving]
  - Lymphadenopathy mediastinal [Unknown]
